FAERS Safety Report 7006376-3 (Version None)
Quarter: 2010Q3

REPORT INFORMATION
  Report Type: 
  Country: None (occurrence: None)
  Receive Date: 20100921
  Receipt Date: 20100920
  Transmission Date: 20110219
  Serious: Yes (Other)
  Sender: FDA-Public Use
  Company Number: US-ROXANE LABORATORIES, INC.-2010-DE-05006GD

PATIENT
  Age: 10 Year
  Sex: Female

DRUGS (6)
  1. PREDNISONE [Suspect]
     Indication: DERMATOMYOSITIS
     Dosage: 40 MG
     Route: 048
  2. PREDNISONE [Suspect]
     Dosage: 20 MG
     Route: 048
  3. PREDNISONE [Suspect]
     Dosage: 7.5 MG
     Route: 048
  4. PREDNISONE [Suspect]
     Dosage: 5 MG
     Route: 048
  5. METHOTREXATE [Concomitant]
     Indication: DERMATOMYOSITIS
     Dosage: 15 MG WEEKLY
     Route: 058
  6. HYDROXYCHLOROQUINE [Concomitant]
     Indication: DERMATOMYOSITIS
     Dosage: 100 MG

REACTIONS (3)
  - ARTHROPATHY [None]
  - OSTEONECROSIS [None]
  - PAIN IN EXTREMITY [None]
